FAERS Safety Report 4999715-6 (Version None)
Quarter: 2006Q2

REPORT INFORMATION
  Report Type: 
  Country: None (occurrence: None)
  Receive Date: 20060510
  Receipt Date: 20060510
  Transmission Date: 20061013
  Serious: Yes (Hospitalization)
  Sender: FDA-Public Use
  Company Number: None

PATIENT
  Age: 78 Year
  Sex: Male
  Weight: 78.0187 kg

DRUGS (1)
  1. WARFARIN SODIUM [Suspect]
     Indication: AORTIC VALVE REPLACEMENT
     Dosage: 4 MG DAILY PO
     Route: 048
     Dates: start: 20020530, end: 20060509

REACTIONS (4)
  - ANAEMIA [None]
  - CATHETER RELATED COMPLICATION [None]
  - DRUG TOXICITY [None]
  - HAEMATURIA TRAUMATIC [None]
